FAERS Safety Report 7047475-X (Version None)
Quarter: 2010Q4

REPORT INFORMATION
  Report Type: 
  Country: None (occurrence: None)
  Receive Date: 20101008
  Receipt Date: 20091111
  Transmission Date: 20110411
  Serious: Yes (Other)
  Sender: FDA-Public Use
  Company Number: GBR-SPN-2009003

PATIENT
  Sex: Female

DRUGS (5)
  1. CYSTADANE [Suspect]
     Indication: HOMOCYSTINURIA
     Dosage: (6 G EVERY DAY), (16 G EVERY DAY)
     Route: 048
     Dates: start: 20010201
  2. PYRIDOXINE HCL [Concomitant]
  3. ASCORBIC ACID [Concomitant]
  4. FOLIC ACID [Concomitant]
  5. VITAMIN B-12 [Concomitant]

REACTIONS (5)
  - BLOOD HOMOCYSTEINE INCREASED [None]
  - BREATH ODOUR [None]
  - SKIN ODOUR ABNORMAL [None]
  - SOCIAL PROBLEM [None]
  - TRIMETHYLAMINURIA [None]
